FAERS Safety Report 18325766 (Version 1)
Quarter: 2020Q3

REPORT INFORMATION
  Report Type: Spontaneous
  Country: US (occurrence: US)
  Receive Date: 20200929
  Receipt Date: 20200929
  Transmission Date: 20201103
  Serious: Yes (Other)
  Sender: FDA-Public Use
  Company Number: US-OTSUKA-2020_021292

PATIENT
  Age: 74 Year
  Sex: Female

DRUGS (4)
  1. SAMSCA [Suspect]
     Active Substance: TOLVAPTAN
     Dosage: UNK
     Route: 065
     Dates: end: 202009
  2. LACTULOSE. [Concomitant]
     Active Substance: LACTULOSE
     Indication: CONSTIPATION
     Dosage: UNK
     Route: 065
  3. SAMSCA [Suspect]
     Active Substance: TOLVAPTAN
     Indication: HYPONATRAEMIA
     Dosage: 15 MG, QD
     Route: 065
     Dates: start: 202009, end: 20200920
  4. CLONIDINE. [Concomitant]
     Active Substance: CLONIDINE
     Indication: PRODUCT USED FOR UNKNOWN INDICATION
     Dosage: UNK
     Route: 065

REACTIONS (15)
  - Gait disturbance [Unknown]
  - Muscular weakness [Not Recovered/Not Resolved]
  - Dysgeusia [Unknown]
  - Thirst [Unknown]
  - Dehydration [Unknown]
  - Feeling abnormal [Unknown]
  - Feeling hot [Unknown]
  - Palpitations [Unknown]
  - Constipation [Not Recovered/Not Resolved]
  - Blood sodium increased [Unknown]
  - Skin discolouration [Unknown]
  - Blood pressure increased [Recovering/Resolving]
  - Hypophagia [Unknown]
  - Blood sodium decreased [Recovering/Resolving]
  - Insomnia [Unknown]

NARRATIVE: CASE EVENT DATE: 202009
